FAERS Safety Report 4401250-0 (Version None)
Quarter: 2004Q3

REPORT INFORMATION
  Report Type: 
  Country: None (occurrence: None)
  Receive Date: 20040907
  Receipt Date: 20040121
  Transmission Date: 20050211
  Serious: No
  Sender: FDA-Public Use
  Company Number: US-BRISTOL-MYERS SQUIBB COMPANY-12484663

PATIENT
  Age: 71 Year
  Sex: Male
  Weight: 64 kg

DRUGS (8)
  1. COUMADIN [Suspect]
     Indication: ATRIAL FIBRILLATION
     Dosage: CONSUMER TAKES 5MG DAILY ON TUES AND THURS AND 2.5 MG DAILY ON OTHER DAYS
     Route: 048
     Dates: start: 19990201
  2. ATENOLOL [Concomitant]
  3. LANOXIN [Concomitant]
  4. FLECAINIDE ACETATE [Concomitant]
  5. TRAZODONE HCL [Concomitant]
  6. VITAMIN E [Concomitant]
  7. VITAMIN C [Concomitant]
  8. CENTRUM [Concomitant]

REACTIONS (1)
  - INTERNATIONAL NORMALISED RATIO DECREASED [None]
